FAERS Safety Report 7897849-X (Version None)
Quarter: 2011Q4

REPORT INFORMATION
  Report Type: 
  Country: None (occurrence: None)
  Receive Date: 20111107
  Receipt Date: 20111028
  Transmission Date: 20120403
  Serious: Yes (Other)
  Sender: FDA-Public Use
  Company Number: PHHY2011JP92753

PATIENT
  Age: 42 Year
  Sex: Male

DRUGS (2)
  1. ZOLEDRONIC ACID [Suspect]
     Indication: METASTASES TO BONE
     Dosage: 4 MG, QMO
     Route: 042
     Dates: start: 20090501
  2. SUNITINIB MALATE [Suspect]
     Indication: METASTASES TO BONE
     Dosage: 50 MG, DAILY
     Route: 048
     Dates: start: 20090501

REACTIONS (6)
  - GINGIVAL SWELLING [None]
  - DENTAL FISTULA [None]
  - EXPOSED BONE IN JAW [None]
  - BLEEDING TIME PROLONGED [None]
  - MOUTH HAEMORRHAGE [None]
  - OSTEONECROSIS OF JAW [None]
